FAERS Safety Report 13593345 (Version 1)
Quarter: 2017Q2

REPORT INFORMATION
  Report Type: Report from Study
  Country: US (occurrence: US)
  Receive Date: 20170530
  Receipt Date: 20170530
  Transmission Date: 20170830
  Serious: Yes (Other)
  Sender: FDA-Public Use
  Company Number: US-ALEXION-A201705640

PATIENT
  Sex: Male

DRUGS (1)
  1. SOLIRIS [Suspect]
     Active Substance: ECULIZUMAB
     Indication: HAEMOLYTIC URAEMIC SYNDROME
     Route: 042

REACTIONS (4)
  - Blood potassium increased [Unknown]
  - Peripheral swelling [Unknown]
  - Cataract [Recovered/Resolved]
  - Arteriovenous fistula occlusion [Unknown]

NARRATIVE: CASE EVENT DATE: 20170516
